FAERS Safety Report 10094723 (Version 1)
Quarter: 2014Q2

REPORT INFORMATION
  Report Type: Spontaneous
  Country: US (occurrence: None)
  Receive Date: 20140421
  Receipt Date: 20140421
  Transmission Date: 20141212
  Serious: Yes (Hospitalization)
  Sender: FDA-Public Use
  Company Number: None

PATIENT
  Sex: Male
  Weight: 102.1 kg

DRUGS (3)
  1. IDARUBICIN [Suspect]
     Dates: start: 20140407, end: 20140409
  2. CYTARABINE [Suspect]
     Dates: start: 20140407, end: 20140414
  3. CEFEPIME [Concomitant]

REACTIONS (4)
  - Pyrexia [None]
  - Dizziness [None]
  - Fall [None]
  - Loss of consciousness [None]
